FAERS Safety Report 17536748 (Version 1)
Quarter: 2020Q1

REPORT INFORMATION
  Report Type: Spontaneous
  Country: FR (occurrence: FR)
  Receive Date: 20200313
  Receipt Date: 20200313
  Transmission Date: 20200409
  Serious: Yes (Hospitalization)
  Sender: FDA-Public Use
  Company Number: FR-UCBSA-2020009832

PATIENT
  Age: 16 Year
  Sex: Female
  Weight: 47 kg

DRUGS (2)
  1. VIMPAT [Suspect]
     Active Substance: LACOSAMIDE
     Indication: PARTIAL SEIZURES
     Dosage: 100 MG IN THE MORNING 150 MG IN THE EVENING, 2X/DAY (BID)
     Route: 048
     Dates: start: 201703
  2. TEGRETOL [Suspect]
     Active Substance: CARBAMAZEPINE
     Indication: PARTIAL SEIZURES
     Dosage: 0.5 CP IN THE MORNING, 1 CP IN THE EVENING
     Route: 048
     Dates: start: 201602

REACTIONS (5)
  - Atrioventricular block first degree [Unknown]
  - Pericardial effusion [Recovered/Resolved]
  - Abdominal pain upper [Recovered/Resolved]
  - Pancytopenia [Unknown]
  - Off label use [Unknown]

NARRATIVE: CASE EVENT DATE: 201703
